FAERS Safety Report 7421141-0 (Version None)
Quarter: 2011Q2

REPORT INFORMATION
  Report Type: 
  Country: None (occurrence: None)
  Receive Date: 20110407
  Receipt Date: 20110331
  Transmission Date: 20111010
  Serious: Yes (Other)
  Sender: FDA-Public Use
  Company Number: 2011-0734

PATIENT
  Age: 56 Year
  Sex: Female

DRUGS (3)
  1. DYSPORT [Suspect]
     Indication: SKIN WRINKLING
     Dosage: 50 UNITS (50 UNITS, SINGLE CYCLE) SUBCUTANEOUS
     Route: 058
     Dates: start: 20101117, end: 20101117
  2. PIROXICAM [Concomitant]
  3. FLANDERCAINE (ANAESTHETIC FOR TOPICAL USE) [Concomitant]

REACTIONS (2)
  - WRONG TECHNIQUE IN DRUG USAGE PROCESS [None]
  - EYELID PTOSIS [None]
